FAERS Safety Report 16642827 (Version 1)
Quarter: 2019Q3

REPORT INFORMATION
  Report Type: Spontaneous
  Country: US (occurrence: US)
  Receive Date: 20190615
  Receipt Date: 20190615
  Transmission Date: 20191004
  Serious: No
  Sender: FDA-Public Use
  Company Number: None

PATIENT
  Sex: Female

DRUGS (1)
  1. ELELYSO [Suspect]
     Active Substance: TALIGLUCERASE ALFA
     Indication: GAUCHER^S DISEASE
     Dosage: ?          OTHER DOSE:1400U;?
     Route: 042
     Dates: start: 20180111

REACTIONS (4)
  - Epistaxis [None]
  - Insurance issue [None]
  - Therapy cessation [None]
  - Fatigue [None]
